FAERS Safety Report 13346553 (Version 1)
Quarter: 2017Q1

REPORT INFORMATION
  Report Type: Spontaneous
  Country: FR (occurrence: FR)
  Receive Date: 20170317
  Receipt Date: 20170317
  Transmission Date: 20170428
  Serious: Yes (Death, Hospitalization, Other)
  Sender: FDA-Public Use
  Company Number: FR-PFIZER INC-2017107676

PATIENT
  Age: 76 Year
  Sex: Female

DRUGS (10)
  1. TAHOR [Suspect]
     Active Substance: ATORVASTATIN CALCIUM
     Indication: DYSLIPIDAEMIA
     Dosage: 10 MG, DAILY
     Route: 048
     Dates: end: 20170203
  2. CETIRIZINE [Concomitant]
     Active Substance: CETIRIZINE HYDROCHLORIDE
     Dosage: UNK
     Dates: end: 20170208
  3. RISPERDAL [Concomitant]
     Active Substance: RISPERIDONE
     Indication: DEPRESSION
     Dosage: UNK
     Dates: start: 2015, end: 20170208
  4. NORSET [Concomitant]
     Active Substance: MIRTAZAPINE
     Indication: DEPRESSION
     Dosage: UNK
     Dates: start: 201602, end: 20170208
  5. SPASFON /00934601/ [Concomitant]
     Active Substance: PHLOROGLUCINOL
     Dosage: UNK
  6. PANTOPRAZOLE [Concomitant]
     Active Substance: PANTOPRAZOLE SODIUM
     Dosage: UNK
  7. PARACETAMOL [Suspect]
     Active Substance: ACETAMINOPHEN
     Indication: ARTHRALGIA
     Dosage: 500 MG, 3X/DAY
     Route: 048
     Dates: end: 20170202
  8. SERESTA [Suspect]
     Active Substance: OXAZEPAM
     Indication: DEPRESSION
     Dosage: 10 MG, 4X/DAY
     Route: 048
     Dates: end: 20170203
  9. GAVISCON /01405501/ [Concomitant]
     Active Substance: SODIUM ALGINATE\SODIUM BICARBONATE
     Dosage: UNK
  10. SPASMINE /01561701/ [Suspect]
     Active Substance: HAWTHORN LEAF WITH FLOWER\VALERIAN
     Indication: INSOMNIA
     Dosage: 2 DF, 3X/DAY
     Route: 048
     Dates: end: 20170203

REACTIONS (19)
  - Campylobacter infection [Unknown]
  - Hepatic steatosis [Unknown]
  - Cholestasis [Recovering/Resolving]
  - Overdose [None]
  - Death [Fatal]
  - Ascites [None]
  - Gastrointestinal wall thickening [None]
  - Acute pulmonary oedema [None]
  - Pleural effusion [Unknown]
  - Hepatic encephalopathy [Unknown]
  - Anuria [Unknown]
  - Hepatocellular injury [None]
  - Malnutrition [None]
  - Hepatitis acute [None]
  - Hepatotoxicity [None]
  - Gastric disorder [Unknown]
  - Pyrexia [Unknown]
  - Hepatocellular injury [Recovering/Resolving]
  - Pulmonary oedema [Unknown]

NARRATIVE: CASE EVENT DATE: 20170202
